FAERS Safety Report 25016197 (Version 1)
Quarter: 2025Q1

REPORT INFORMATION
  Report Type: Other
  Country: AU (occurrence: AU)
  Receive Date: 20250227
  Receipt Date: 20250227
  Transmission Date: 20250408
  Serious: Yes (Other)
  Sender: KARYOPHARM THERAPEUTICS
  Company Number: AU-ANTENGENE-20250203028

PATIENT

DRUGS (7)
  1. XPOVIO [Suspect]
     Active Substance: SELINEXOR
     Indication: Product used for unknown indication
  2. BORTEZOMIB [Suspect]
     Active Substance: BORTEZOMIB
     Indication: Product used for unknown indication
  3. DEXAMETHASONE [Suspect]
     Active Substance: DEXAMETHASONE
     Indication: Product used for unknown indication
  4. BACTRIM [Concomitant]
     Active Substance: SULFAMETHOXAZOLE\TRIMETHOPRIM
  5. ACETAMINOPHEN\CODEINE PHOSPHATE\DOXYLAMINE SUCCINATE [Concomitant]
     Active Substance: ACETAMINOPHEN\CODEINE PHOSPHATE\DOXYLAMINE SUCCINATE
  6. ASPIRIN [Concomitant]
     Active Substance: ASPIRIN
  7. VALACYCLOVIR HYDROCHLORIDE [Concomitant]
     Active Substance: VALACYCLOVIR HYDROCHLORIDE

REACTIONS (1)
  - Plasma cell myeloma refractory [Unknown]
